FAERS Safety Report 17139651 (Version 1)
Quarter: 2019Q4

REPORT INFORMATION
  Report Type: Spontaneous
  Country: US (occurrence: US)
  Receive Date: 20191120
  Receipt Date: 20191120
  Transmission Date: 20200122
  Serious: Yes (Other)
  Sender: FDA-Public Use
  Company Number: None

PATIENT
  Age: 14 Year
  Sex: Male
  Weight: 58.06 kg

DRUGS (1)
  1. METHYLPHENIDATE HCI [Suspect]
     Active Substance: METHYLPHENIDATE HYDROCHLORIDE
     Indication: ATTENTION DEFICIT/HYPERACTIVITY DISORDER
     Route: 048
     Dates: start: 20191116, end: 20191118

REACTIONS (5)
  - Product substitution issue [None]
  - Condition aggravated [None]
  - Aggression [None]
  - Irritability [None]
  - Immobile [None]

NARRATIVE: CASE EVENT DATE: 20191118
